FAERS Safety Report 4932482-0 (Version None)
Quarter: 2006Q1

REPORT INFORMATION
  Report Type: 
  Country: None (occurrence: None)
  Receive Date: 20060301
  Receipt Date: 20060214
  Transmission Date: 20060701
  Serious: Yes (Death, Disabling, Other)
  Sender: FDA-Public Use
  Company Number: 2006-0009232

PATIENT
  Age: 44 Year
  Sex: Male

DRUGS (4)
  1. VIREAD [Suspect]
  2. DIDANOSINE [Concomitant]
  3. RITONAVIR (RITONAVIR) [Concomitant]
  4. ATAZANAVIR (ATAZANAVIR) [Concomitant]

REACTIONS (12)
  - ASTHENIA [None]
  - CEREBRAL ATROPHY [None]
  - CLONUS [None]
  - DIFFICULTY IN WALKING [None]
  - HYPERREFLEXIA [None]
  - LIPOMATOSIS [None]
  - MULTI-ORGAN FAILURE [None]
  - MUSCLE ATROPHY [None]
  - NERVE ROOT COMPRESSION [None]
  - PAIN IN EXTREMITY [None]
  - PNEUMONIA [None]
  - URINARY INCONTINENCE [None]
